FAERS Safety Report 6016495-6 (Version None)
Quarter: 2008Q4

REPORT INFORMATION
  Report Type: 
  Country: None (occurrence: None)
  Receive Date: 20081222
  Receipt Date: 20081209
  Transmission Date: 20090506
  Serious: Yes (Hospitalization)
  Sender: FDA-Public Use
  Company Number: GB-ELI_LILLY_AND_COMPANY-GB200810005436

PATIENT
  Sex: Female

DRUGS (3)
  1. ZYPREXA [Suspect]
     Indication: SCHIZOPHRENIA
     Dosage: 20 MG, UNK
     Route: 048
     Dates: start: 20081006, end: 20081021
  2. ZYPREXA [Suspect]
     Dosage: 15 MG, EACH EVENING
     Route: 048
     Dates: start: 20081006, end: 20081021
  3. CORSODYL MINT MOUTHWASH [Concomitant]
     Indication: BREATH ODOUR
     Dosage: UNK, OTHER
     Dates: start: 20081016, end: 20081021

REACTIONS (3)
  - MENTAL DISORDER [None]
  - NEUTROPENIA [None]
  - URINARY TRACT INFECTION [None]
